FAERS Safety Report 7212026-3 (Version None)
Quarter: 2010Q4

REPORT INFORMATION
  Report Type: 
  Country: None (occurrence: None)
  Receive Date: 20101228
  Receipt Date: 20101217
  Transmission Date: 20110411
  Serious: Yes (Other)
  Sender: FDA-Public Use
  Company Number: HRA-CDB20100068

PATIENT
  Age: 15 Year
  Sex: Female

DRUGS (2)
  1. ELLAONE 30 MG COMPRIME (ELLAONE) (ULIPRISTAL ACETATE) [Suspect]
     Indication: PRODUCT USED FOR UNKNOWN INDICATION
     Dosage: 30 MG (30 MG, 1 IN 1 D); 30 MG (30 MG, 1 IN 1 D)
     Dates: start: 20101112, end: 20101112
  2. ELLAONE 30 MG COMPRIME (ELLAONE) (ULIPRISTAL ACETATE) [Suspect]
     Indication: PRODUCT USED FOR UNKNOWN INDICATION
     Dosage: 30 MG (30 MG, 1 IN 1 D); 30 MG (30 MG, 1 IN 1 D)
     Dates: start: 20101203, end: 20101203

REACTIONS (2)
  - ABORTION SPONTANEOUS [None]
  - DRUG EXPOSURE DURING PREGNANCY [None]
